FAERS Safety Report 15995631 (Version 2)
Quarter: 2019Q1

REPORT INFORMATION
  Report Type: Spontaneous
  Country: PL (occurrence: PL)
  Receive Date: 20190222
  Receipt Date: 20190306
  Transmission Date: 20190418
  Serious: Yes (Death, Hospitalization, Other)
  Sender: FDA-Public Use
  Company Number: PL-ROCHE-2266632

PATIENT
  Age: 58 Year
  Sex: Female

DRUGS (30)
  1. CLINDAMYCIN. [Suspect]
     Active Substance: CLINDAMYCIN
     Indication: OTITIS MEDIA
     Route: 065
  2. OPIPRAMOL [Suspect]
     Active Substance: OPIPRAMOL
     Indication: PULMONARY EMBOLISM
     Route: 065
  3. CIPROFLOXACINE [Suspect]
     Active Substance: CIPROFLOXACIN
     Indication: PSEUDOMONAS INFECTION
     Route: 065
  4. AMIKACIN. [Suspect]
     Active Substance: AMIKACIN
     Indication: BACTERIAL INFECTION
     Route: 065
  5. AMOXICILLIN/CLAVULANATE [Suspect]
     Active Substance: AMOXICILLIN\CLAVULANATE POTASSIUM
     Indication: ESCHERICHIA URINARY TRACT INFECTION
     Route: 065
  6. PANTOPRAZOLE [Suspect]
     Active Substance: PANTOPRAZOLE
     Indication: PRODUCT USED FOR UNKNOWN INDICATION
     Dosage: UNK UNK,UNK
     Route: 065
  7. AMPICILLIN SODIUM/SULBACTAM SODIUM [Suspect]
     Active Substance: AMPICILLIN SODIUM\SULBACTAM SODIUM
     Indication: BACTERIAL INFECTION
     Route: 065
  8. CEFUROXIME. [Suspect]
     Active Substance: CEFUROXIME
     Indication: BACTERIAL INFECTION
     Route: 065
  9. GLIMEPIRIDE. [Suspect]
     Active Substance: GLIMEPIRIDE
     Indication: DIABETES MELLITUS
     Route: 065
  10. ITRACONAZOLE. [Suspect]
     Active Substance: ITRACONAZOLE
     Indication: BACTERIAL INFECTION
     Route: 065
  11. MYCOPHENOLATE MOFETIL. [Suspect]
     Active Substance: MYCOPHENOLATE MOFETIL
     Indication: PROPHYLAXIS AGAINST TRANSPLANT REJECTION
     Dosage: 1000 MG, BID
     Route: 065
  12. RITUXIMAB. [Suspect]
     Active Substance: RITUXIMAB
     Indication: LYMPHOCYTOTOXIC ANTIBODY POSITIVE
     Route: 065
  13. GANCICLOVIR. [Suspect]
     Active Substance: GANCICLOVIR
     Indication: CYTOMEGALOVIRUS INFECTION
     Route: 065
  14. CEFTAZIDIME. [Suspect]
     Active Substance: CEFTAZIDIME
     Indication: PSEUDOMONAS INFECTION
  15. VENLAFAXINE [Suspect]
     Active Substance: VENLAFAXINE HYDROCHLORIDE
     Indication: ANXIETY DISORDER
     Route: 065
  16. AMOXICILLIN/CLAVULANATE [Suspect]
     Active Substance: AMOXICILLIN\CLAVULANATE POTASSIUM
     Indication: MORAXELLA INFECTION
  17. CEFTAZIDIME. [Suspect]
     Active Substance: CEFTAZIDIME
     Indication: ESCHERICHIA SEPSIS
     Route: 065
  18. BUDESONIDE. [Suspect]
     Active Substance: BUDESONIDE
     Indication: POLYP
     Dosage: INHALATION
     Route: 065
  19. BUDESONIDE. [Suspect]
     Active Substance: BUDESONIDE
     Indication: OTITIS MEDIA
     Route: 065
  20. VALGANCICLOVIR. [Suspect]
     Active Substance: VALGANCICLOVIR
     Indication: CYTOMEGALOVIRUS INFECTION
     Route: 065
  21. PREDNISONE. [Suspect]
     Active Substance: PREDNISONE
     Indication: PROPHYLAXIS AGAINST TRANSPLANT REJECTION
     Dosage: 10 MG,QD
     Route: 065
  22. MIANSERIN [Suspect]
     Active Substance: MIANSERIN
     Indication: DEPRESSION
     Route: 065
  23. AMPHOTERICIN B. [Suspect]
     Active Substance: AMPHOTERICIN B
     Indication: BACTERIAL INFECTION
     Route: 065
  24. INSULIN [Suspect]
     Active Substance: INSULIN NOS
     Indication: DIABETES MELLITUS
     Route: 065
  25. IMIPENEM [Suspect]
     Active Substance: IMIPENEM
     Indication: BACTERIAL INFECTION
     Route: 065
  26. CLINDAMYCIN. [Suspect]
     Active Substance: CLINDAMYCIN
     Indication: SINUSITIS
  27. AMOXICILLIN/CLAVULANATE [Suspect]
     Active Substance: AMOXICILLIN\CLAVULANATE POTASSIUM
     Indication: BRONCHITIS
  28. CICLOSPORIN [Suspect]
     Active Substance: CYCLOSPORINE
     Indication: PROPHYLAXIS AGAINST TRANSPLANT REJECTION
     Dosage: 50 MG,BID
     Route: 065
  29. METHYLPREDNISOLONE. [Suspect]
     Active Substance: METHYLPREDNISOLONE
     Indication: IMMUNOSUPPRESSION
     Dosage: UNK UNK,UNK
     Route: 065
  30. TACROLIMUS. [Suspect]
     Active Substance: TACROLIMUS
     Indication: PROPHYLAXIS AGAINST TRANSPLANT REJECTION
     Dosage: .5 MG,QD
     Route: 065

REACTIONS (16)
  - Proteus infection [Unknown]
  - Aspergillus infection [Unknown]
  - Moraxella infection [Unknown]
  - Candida infection [Unknown]
  - Klebsiella infection [Unknown]
  - Escherichia urinary tract infection [Unknown]
  - Acinetobacter infection [Unknown]
  - Pseudomonas infection [Recovered/Resolved]
  - Hypogammaglobulinaemia [Unknown]
  - Leukopenia [Unknown]
  - Cytomegalovirus infection [Unknown]
  - Diabetic ketoacidosis [Unknown]
  - Ear infection [Unknown]
  - Sinusitis [Unknown]
  - Sepsis [Fatal]
  - Bronchitis [Unknown]
